FAERS Safety Report 15264759 (Version 2)
Quarter: 2018Q3

REPORT INFORMATION
  Report Type: Spontaneous
  Country: US (occurrence: US)
  Receive Date: 20180810
  Receipt Date: 20180918
  Transmission Date: 20181010
  Serious: No
  Sender: FDA-Public Use
  Company Number: US-PFIZER INC-2018317055

PATIENT
  Age: 56 Year
  Sex: Male
  Weight: 85.28 kg

DRUGS (2)
  1. SILDENAFIL. [Suspect]
     Active Substance: SILDENAFIL
     Indication: PROSTATECTOMY
     Dosage: 20 MG, AS NEEDED
     Route: 048
     Dates: start: 201710
  2. VIAGRA [Suspect]
     Active Substance: SILDENAFIL CITRATE
     Indication: PROSTATIC OPERATION
     Dosage: 50 MG, UNK
     Route: 048
     Dates: start: 201612

REACTIONS (3)
  - Product use in unapproved indication [Unknown]
  - Visual brightness [Not Recovered/Not Resolved]
  - Expired product administered [Unknown]

NARRATIVE: CASE EVENT DATE: 20180805
